FAERS Safety Report 7404035-6 (Version None)
Quarter: 2011Q2

REPORT INFORMATION
  Report Type: 
  Country: None (occurrence: None)
  Receive Date: 20110408
  Receipt Date: 20110308
  Transmission Date: 20111010
  Serious: Yes (Hospitalization, Other)
  Sender: FDA-Public Use
  Company Number: US-BAYER-201023037NA

PATIENT
  Age: 41 Year
  Sex: Female
  Weight: 65.76 kg

DRUGS (14)
  1. OXYCODONE HCL AND ACETAMINOPHEN [Concomitant]
  2. ALPRAZOLAM [Concomitant]
  3. OVCON-35 [Concomitant]
     Dosage: UNK
     Dates: start: 20040326
  4. ZOVIA 1/35E-21 [Concomitant]
     Dosage: UNK
     Dates: start: 20040415
  5. YASMIN [Suspect]
     Indication: PRODUCT USED FOR UNKNOWN INDICATION
     Dosage: UNK UNK, QD
     Route: 048
     Dates: start: 20040101
  6. HYDROCODONE BITARTRATE AND ACETAMINOPHEN [Concomitant]
  7. TRAMADOL [Concomitant]
  8. PROMETHAZINE [Concomitant]
  9. PREVACID [Concomitant]
  10. TETRACYCLINE [Concomitant]
  11. ULTRACET [Concomitant]
  12. METRONIDAZOLE [Concomitant]
  13. WELLBUTRIN XL [Concomitant]
  14. EFFEXOR XR [Concomitant]

REACTIONS (2)
  - DEEP VEIN THROMBOSIS [None]
  - PULMONARY EMBOLISM [None]
